FAERS Safety Report 7311915-9 (Version None)
Quarter: 2011Q1

REPORT INFORMATION
  Report Type: 
  Country: None (occurrence: None)
  Receive Date: 20110215
  Receipt Date: 20110215
  Transmission Date: 20110831
  Serious: Yes (Death)
  Sender: FDA-Public Use
  Company Number: None

PATIENT
  Sex: Male

DRUGS (23)
  1. PROBEN/COLON [Concomitant]
  2. FUROSEMIDE [Concomitant]
  3. WARFARIN [Concomitant]
  4. DIOVAN [Concomitant]
  5. NIFEDIPINE [Concomitant]
  6. NITRO PATCHES [Concomitant]
  7. DARVOCET [Concomitant]
  8. NITROGLYCERIN [Concomitant]
  9. FISH OIL [Concomitant]
  10. GINKO BILOBA [Concomitant]
  11. KETOROLAC [Concomitant]
  12. RANIBIZUMAB 0.5 MG GENENTECH [Suspect]
     Indication: MACULAR DEGENERATION
     Dosage: 0.05 ML MONTHLY IVT
     Route: 042
     Dates: start: 20101228
  13. RANIBIZUMAB 0.5 MG GENENTECH [Suspect]
     Indication: MACULAR DEGENERATION
     Dosage: 0.05 ML MONTHLY IVT
     Route: 042
     Dates: start: 20100722
  14. RANIBIZUMAB 0.5 MG GENENTECH [Suspect]
     Indication: MACULAR DEGENERATION
     Dosage: 0.05 ML MONTHLY IVT
     Route: 042
     Dates: start: 20101119
  15. RANIBIZUMAB 0.5 MG GENENTECH [Suspect]
     Indication: MACULAR DEGENERATION
     Dosage: 0.05 ML MONTHLY IVT
     Route: 042
     Dates: start: 20110125
  16. RANIBIZUMAB 0.5 MG GENENTECH [Suspect]
     Indication: MACULAR DEGENERATION
     Dosage: 0.05 ML MONTHLY IVT
     Route: 042
     Dates: start: 20101025
  17. VITAMIN E [Concomitant]
  18. SIMVASTATIN [Concomitant]
  19. AMLODIPINE [Concomitant]
  20. TEMAZEPAM [Concomitant]
  21. PANTOPRAZOLE [Concomitant]
  22. LEVOTHYROXINE SODIUM [Concomitant]
  23. BRIMONIDINE TARTRATE [Concomitant]

REACTIONS (1)
  - CHRONIC OBSTRUCTIVE PULMONARY DISEASE [None]
